FAERS Safety Report 4562880-9 (Version None)
Quarter: 2005Q1

REPORT INFORMATION
  Report Type: 
  Country: None (occurrence: None)
  Receive Date: 20050121
  Receipt Date: 20050104
  Transmission Date: 20050727
  Serious: Yes (Hospitalization)
  Sender: FDA-Public Use
  Company Number: CZ-2004-035523

PATIENT
  Age: 21 Year
  Sex: Female
  Weight: 78 kg

DRUGS (1)
  1. YASMIN [Suspect]
     Indication: ORAL CONTRACEPTION
     Dosage: 24/28D 1X/DAY ORAL
     Route: 048
     Dates: start: 20040429

REACTIONS (2)
  - OVARIAN ADENOMA [None]
  - OVARIAN CYST [None]
